FAERS Safety Report 8818659 (Version 1)
Quarter: 2012Q4

REPORT INFORMATION
  Report Type: 
  Country: CH (occurrence: CH)
  Receive Date: 20121001
  Receipt Date: 20121001
  Transmission Date: 20130627
  Serious: Yes (Hospitalization)
  Sender: FDA-Public Use
  Company Number: PHHY2012CH083805

PATIENT
  Age: 59 Year
  Sex: Male

DRUGS (4)
  1. IMIPRAMINE [Suspect]
     Dosage: 150 mg / day
  2. LITHIOFOR [Suspect]
     Indication: DEPRESSION
     Dosage: 1320 mg / day
  3. LITHIOFOR [Suspect]
     Dosage: 660 mg / day
  4. LEVOTHYROXINE SODIUM [Concomitant]
     Indication: HYPOTHYROIDISM

REACTIONS (12)
  - Toxic encephalopathy [Recovered/Resolved]
  - Motor dysfunction [Recovered/Resolved]
  - Disturbance in attention [Recovered/Resolved]
  - Abnormal behaviour [Recovered/Resolved]
  - Speech disorder [Recovered/Resolved]
  - Somnolence [Recovered/Resolved]
  - Cognitive disorder [Recovered/Resolved]
  - Executive dysfunction [Recovered/Resolved]
  - Memory impairment [Recovered/Resolved]
  - Hypothyroidism [Recovered/Resolved]
  - Fall [Recovered/Resolved]
  - Neurodegenerative disorder [None]
